FAERS Safety Report 22264878 (Version 1)
Quarter: 2023Q2

REPORT INFORMATION
  Report Type: Spontaneous
  Country: CH (occurrence: CH)
  Receive Date: 20230428
  Receipt Date: 20230428
  Transmission Date: 20230721
  Serious: Yes (Hospitalization, Other)
  Sender: FDA-Public Use
  Company Number: CH-MYLANLABS-2023M1043839

PATIENT
  Sex: Male

DRUGS (1)
  1. INSPRA [Suspect]
     Active Substance: EPLERENONE
     Indication: Hypertension
     Dosage: UNK UNK, QD (ONCE A DAY)
     Route: 065

REACTIONS (3)
  - Peripheral swelling [Unknown]
  - Blood pressure abnormal [Unknown]
  - Off label use [Unknown]
